FAERS Safety Report 8797121 (Version 1)
Quarter: 2012Q4

REPORT INFORMATION
  Report Type: 
  Country: US (occurrence: US)
  Receive Date: 20120919
  Receipt Date: 20120919
  Transmission Date: 20130627
  Serious: Yes (Other)
  Sender: FDA-Public Use
  Company Number: US-PFIZER INC-2012229977

PATIENT
  Age: 53 Year
  Sex: Female
  Weight: 77.1 kg

DRUGS (6)
  1. NORVASC [Suspect]
     Indication: HYPERTENSION
     Dosage: 10 mg, 1x/day
     Route: 048
  2. SPIRIVA [Suspect]
     Indication: CHRONIC OBSTRUCTIVE PULMONARY DISEASE
     Dosage: UNK
  3. OXYGEN [Concomitant]
     Dosage: 24 hours a day
     Route: 055
  4. SYMBICORT [Concomitant]
     Dosage: UNK
  5. PROVENTIL INHALER [Concomitant]
     Dosage: UNK
  6. SINGULAIR [Concomitant]
     Dosage: 10 mg, UNK

REACTIONS (1)
  - Pneumonia [Unknown]
